FAERS Safety Report 14958397 (Version 1)
Quarter: 2018Q2

REPORT INFORMATION
  Report Type: Spontaneous
  Country: US (occurrence: US)
  Receive Date: 20180509
  Receipt Date: 20180509
  Transmission Date: 20180711
  Serious: Yes (Hospitalization)
  Sender: FDA-Public Use
  Company Number: None

PATIENT
  Age: 58 Year
  Sex: Female

DRUGS (16)
  1. CELECOXB [Concomitant]
  2. CLONIDINE. [Concomitant]
     Active Substance: CLONIDINE
  3. FOLIC ACID. [Concomitant]
     Active Substance: FOLIC ACID
  4. MECLIZINE [Concomitant]
     Active Substance: MECLIZINE HYDROCHLORIDE
  5. LEVOCETIRIZ [Concomitant]
  6. HUMIRA [Suspect]
     Active Substance: ADALIMUMAB
     Indication: ANKYLOSING SPONDYLITIS
     Dosage: OTHER FREQUENCY:EVERY TWO WEEKS;?
     Route: 058
     Dates: start: 20180104
  7. VITAMIN D [Concomitant]
     Active Substance: CHOLECALCIFEROL
  8. PANTOPRAZOLE [Concomitant]
     Active Substance: PANTOPRAZOLE
  9. XARELTO [Concomitant]
     Active Substance: RIVAROXABAN
  10. NASACORT [Concomitant]
     Active Substance: TRIAMCINOLONE ACETONIDE
  11. CYCLOBENZAP [Concomitant]
  12. TIROSINT [Concomitant]
     Active Substance: LEVOTHYROXINE SODIUM
  13. RANITIDINE. [Concomitant]
     Active Substance: RANITIDINE
  14. PROAIR HFA [Concomitant]
     Active Substance: ALBUTEROL SULFATE
  15. VALSARTAN. [Concomitant]
     Active Substance: VALSARTAN
  16. ATORVASTATIN [Concomitant]
     Active Substance: ATORVASTATIN

REACTIONS (1)
  - Drug dose omission [None]

NARRATIVE: CASE EVENT DATE: 20180401
